FAERS Safety Report 17826606 (Version 5)
Quarter: 2020Q3

REPORT INFORMATION
  Report Type: Report from Study
  Country: US (occurrence: US)
  Receive Date: 20200526
  Receipt Date: 20200821
  Transmission Date: 20201102
  Serious: Yes (Hospitalization)
  Sender: FDA-Public Use
  Company Number: US-ACTELION-A-US2020-205366

PATIENT
  Age: 77 Year
  Sex: Female
  Weight: 97.51 kg

DRUGS (30)
  1. MELATONIN [Concomitant]
     Active Substance: MELATONIN
  2. PROLIA [Concomitant]
     Active Substance: DENOSUMAB
  3. MEMANTINE. [Concomitant]
     Active Substance: MEMANTINE
  4. SPIRIVA [Concomitant]
     Active Substance: TIOTROPIUM BROMIDE MONOHYDRATE
  5. ALLOPURINOL. [Concomitant]
     Active Substance: ALLOPURINOL
  6. FUROSEMIDE. [Concomitant]
     Active Substance: FUROSEMIDE
  7. POTASSIUM CHLORIDE. [Concomitant]
     Active Substance: POTASSIUM CHLORIDE
  8. CALCIUM [Concomitant]
     Active Substance: CALCIUM
  9. ASPIRIN 81 [Concomitant]
     Active Substance: ASPIRIN
  10. AMLODIPINE [Concomitant]
     Active Substance: AMLODIPINE BESYLATE
  11. CYMBALTA [Concomitant]
     Active Substance: DULOXETINE HYDROCHLORIDE
  12. OPSUMIT [Suspect]
     Active Substance: MACITENTAN
     Indication: PULMONARY HYPERTENSION
     Dosage: 10 MG, QD
     Route: 048
     Dates: start: 2019
  13. LOSARTAN. [Concomitant]
     Active Substance: LOSARTAN
     Dosage: 100 MG
  14. DULOXETINE. [Concomitant]
     Active Substance: DULOXETINE
  15. AMITIZA [Concomitant]
     Active Substance: LUBIPROSTONE
  16. TRAZODONE [Concomitant]
     Active Substance: TRAZODONE HYDROCHLORIDE
  17. AMLODIPINE BESYLATE. [Concomitant]
     Active Substance: AMLODIPINE BESYLATE
     Dosage: 10 MG
  18. TRELEGY ELLIPTA [Concomitant]
     Active Substance: FLUTICASONE FUROATE\UMECLIDINIUM BROMIDE\VILANTEROL TRIFENATATE
  19. TRAMADOL. [Concomitant]
     Active Substance: TRAMADOL
  20. SILDENAFIL CITRATE. [Suspect]
     Active Substance: SILDENAFIL CITRATE
     Indication: PRODUCT USED FOR UNKNOWN INDICATION
     Route: 065
  21. TIZANIDINE. [Concomitant]
     Active Substance: TIZANIDINE
  22. DONEPEZIL. [Concomitant]
     Active Substance: DONEPEZIL
     Dosage: 5 MG
  23. CLONIDINE. [Concomitant]
     Active Substance: CLONIDINE
  24. GABAPENTIN. [Concomitant]
     Active Substance: GABAPENTIN
  25. FENOFIBRATE. [Concomitant]
     Active Substance: FENOFIBRATE
     Dosage: 16 MG
  26. ALBUTEROL HFA [Concomitant]
     Active Substance: ALBUTEROL SULFATE
  27. SYMBICORT [Concomitant]
     Active Substance: BUDESONIDE\FORMOTEROL FUMARATE DIHYDRATE
  28. MAGNESIUM [Concomitant]
     Active Substance: MAGNESIUM
  29. ALEVE [Concomitant]
     Active Substance: NAPROXEN SODIUM
  30. LASIX M [Concomitant]
     Active Substance: FUROSEMIDE
     Dosage: 40 MG
     Dates: start: 20200503, end: 20200513

REACTIONS (6)
  - Wheezing [Recovered/Resolved]
  - Bronchitis [Recovered/Resolved]
  - Pneumonia [Unknown]
  - Dyspnoea [Recovered/Resolved]
  - Pleural effusion [Recovered/Resolved]
  - Pulmonary oedema [Recovered/Resolved]

NARRATIVE: CASE EVENT DATE: 20200501
